APPROVED DRUG PRODUCT: ZINC SULFATE
Active Ingredient: ZINC SULFATE
Strength: EQ 25MG BASE/5ML (EQ 5MG BASE/ML)
Dosage Form/Route: SOLUTION;INTRAVENOUS
Application: A217074 | Product #002 | TE Code: AP
Applicant: ZYDUS PHARMACEUTICALS USA INC
Approved: Aug 22, 2023 | RLD: No | RS: No | Type: RX